FAERS Safety Report 22036797 (Version 1)
Quarter: 2023Q1

REPORT INFORMATION
  Report Type: Spontaneous
  Country: FR (occurrence: FR)
  Receive Date: 20230225
  Receipt Date: 20230225
  Transmission Date: 20230418
  Serious: Yes (Hospitalization)
  Sender: FDA-Public Use
  Company Number: None

PATIENT
  Age: 1 Year
  Sex: Female

DRUGS (6)
  1. VIMPAT [Suspect]
     Active Substance: LACOSAMIDE
     Indication: Accidental exposure to product
     Dosage: 200 MILLIGRAM
     Route: 048
     Dates: start: 20210810, end: 20210810
  2. LAMICTAL [Suspect]
     Active Substance: LAMOTRIGINE
     Indication: Accidental exposure to product
     Dosage: UNK
     Route: 048
     Dates: start: 20210810, end: 20210810
  3. FOLIC ACID [Suspect]
     Active Substance: FOLIC ACID
     Indication: Accidental exposure to product
     Route: 048
     Dates: start: 20210810, end: 20210810
  4. DOLIPRANE [Suspect]
     Active Substance: ACETAMINOPHEN
     Indication: Accidental exposure to product
     Route: 048
     Dates: start: 20210810, end: 20210810
  5. FYCOMPA [Suspect]
     Active Substance: PERAMPANEL
     Indication: Accidental exposure to product
     Route: 048
     Dates: start: 20210810, end: 20210810
  6. RIVOTRIL [Suspect]
     Active Substance: CLONAZEPAM
     Indication: Accidental exposure to product
     Route: 048
     Dates: start: 20210810, end: 20210810

REACTIONS (3)
  - Accidental exposure to product [Unknown]
  - Balance disorder [Recovered/Resolved]
  - Euphoric mood [Recovered/Resolved]

NARRATIVE: CASE EVENT DATE: 20210810
